FAERS Safety Report 9403405 (Version 1)
Quarter: 2013Q3

REPORT INFORMATION
  Report Type: Spontaneous
  Country: CN (occurrence: CN)
  Receive Date: 20130716
  Receipt Date: 20130716
  Transmission Date: 20140515
  Serious: Yes (Other)
  Sender: FDA-Public Use
  Company Number: CN-BAXTER-2013BAX026714

PATIENT
  Age: 51 Year
  Sex: Male
  Weight: 66 kg

DRUGS (2)
  1. 5% GLUCOSE INJECTION [Suspect]
     Indication: ADJUVANT THERAPY
     Route: 041
     Dates: start: 20121122, end: 20121122
  2. TIOPRONIN [Suspect]
     Indication: ADJUVANT THERAPY
     Route: 041
     Dates: start: 20121122, end: 20121122

REACTIONS (3)
  - Chest discomfort [Recovering/Resolving]
  - Abdominal discomfort [Recovering/Resolving]
  - Cold sweat [Recovering/Resolving]
